FAERS Safety Report 6211730-3 (Version None)
Quarter: 2009Q2

REPORT INFORMATION
  Report Type: 
  Country: None (occurrence: None)
  Receive Date: 20090602
  Receipt Date: 20090427
  Transmission Date: 20091009
  Serious: Yes (Disabling)
  Sender: FDA-Public Use
  Company Number: JP-PFIZER INC-2009199845

PATIENT

DRUGS (2)
  1. XALATAN [Suspect]
     Indication: GLAUCOMA
     Dosage: 1 GTT, 1X/DAY
     Route: 047
     Dates: start: 20060901
  2. KARY UNI [Suspect]
     Indication: CATARACT
     Dosage: 1 GTT, 3X/DAY
     Route: 047

REACTIONS (2)
  - BLINDNESS UNILATERAL [None]
  - DERMATITIS CONTACT [None]
